FAERS Safety Report 6860438-X (Version None)
Quarter: 2010Q3

REPORT INFORMATION
  Report Type: 
  Country: None (occurrence: None)
  Receive Date: 20100719
  Receipt Date: 20100719
  Transmission Date: 20110219
  Serious: Yes (Other)
  Sender: FDA-Public Use
  Company Number: None

PATIENT

DRUGS (2)
  1. LOVENOX [Suspect]
     Indication: THROMBOSIS PROPHYLAXIS
     Dosage: SQ
     Route: 058
  2. LOVENOX [Suspect]

REACTIONS (4)
  - INJURY ASSOCIATED WITH DEVICE [None]
  - PHYSICAL PRODUCT LABEL ISSUE [None]
  - PRODUCT OUTER PACKAGING ISSUE [None]
  - PRODUCT QUALITY ISSUE [None]
